FAERS Safety Report 17246139 (Version 1)
Quarter: 2019Q4

REPORT INFORMATION
  Report Type: Spontaneous
  Country: US (occurrence: US)
  Receive Date: 20191213
  Receipt Date: 20191213
  Transmission Date: 20200122
  Serious: Yes (Hospitalization)
  Sender: FDA-Public Use
  Company Number: None

PATIENT
  Age: 61 Year
  Sex: Female

DRUGS (1)
  1. IMATINIB MES 400 MG TAB [Suspect]
     Active Substance: IMATINIB
     Indication: CHEMOTHERAPY
     Dosage: ?          OTHER FREQUENCY:1 TAB FOR 28 DAYS;?
     Route: 048
     Dates: start: 20190927

REACTIONS (1)
  - Hospitalisation [None]
